FAERS Safety Report 22525387 (Version 1)
Quarter: 2023Q2

REPORT INFORMATION
  Report Type: Spontaneous
  Country: US (occurrence: US)
  Receive Date: 20230606
  Receipt Date: 20230606
  Transmission Date: 20230721
  Serious: No
  Sender: FDA-Public Use
  Company Number: US-BRISTOL-MYERS SQUIBB COMPANY-2023-078978

PATIENT
  Age: 70 Year
  Sex: Male

DRUGS (1)
  1. REVLIMID [Suspect]
     Active Substance: LENALIDOMIDE
     Indication: Plasma cell myeloma
     Dosage: FREQ: ONCE DAILY FOR 14 DAYS AND 7 DAYS OFF.?TOOK REVLIMID FOR 3 CYCLES.
     Route: 048
     Dates: start: 202209

REACTIONS (2)
  - Rash [Recovered/Resolved]
  - Off label use [Unknown]
